FAERS Safety Report 23133382 (Version 1)
Quarter: 2023Q4

REPORT INFORMATION
  Report Type: Spontaneous
  Country: US (occurrence: US)
  Receive Date: 20231101
  Receipt Date: 20231101
  Transmission Date: 20240109
  Serious: No
  Sender: FDA-Public Use
  Company Number: US-BAYER-2023A137078

PATIENT
  Age: 40 Year
  Sex: Female

DRUGS (2)
  1. PRAZIQUANTEL [Suspect]
     Active Substance: PRAZIQUANTEL
  2. DEXAMETHASONE [Concomitant]
     Active Substance: DEXAMETHASONE

REACTIONS (1)
  - Drug ineffective [None]
